FAERS Safety Report 7142415-7 (Version None)
Quarter: 2010Q4

REPORT INFORMATION
  Report Type: 
  Country: None (occurrence: None)
  Receive Date: 20101207
  Receipt Date: 20101203
  Transmission Date: 20110411
  Serious: No
  Sender: FDA-Public Use
  Company Number: US-PFIZER INC-2010164107

PATIENT
  Sex: Female
  Weight: 90.7 kg

DRUGS (1)
  1. NICOTROL [Suspect]
     Indication: SMOKING CESSATION THERAPY
     Dosage: UNK, AS NEEDED
     Dates: start: 20101101

REACTIONS (1)
  - DRUG INEFFECTIVE [None]
